FAERS Safety Report 15895036 (Version 1)
Quarter: 2019Q1

REPORT INFORMATION
  Report Type: Spontaneous
  Country: DK (occurrence: DK)
  Receive Date: 20190131
  Receipt Date: 20190131
  Transmission Date: 20190417
  Serious: Yes (Other)
  Sender: FDA-Public Use
  Company Number: DK-ELI_LILLY_AND_COMPANY-DK201901010850

PATIENT
  Age: 88 Year
  Sex: Female

DRUGS (17)
  1. ALENDRONATE [Suspect]
     Active Substance: ALENDRONATE SODIUM
     Dosage: 70 MG, WEEKLY (1/W)
     Route: 048
     Dates: start: 2010, end: 2012
  2. TIOTROPIUM [Concomitant]
     Active Substance: TIOTROPIUM
     Indication: CHRONIC OBSTRUCTIVE PULMONARY DISEASE
     Dosage: 2 DF, DAILY
     Route: 055
     Dates: start: 20150102
  3. PANTOPRAZOLE SODIUM SESQUIHYDRATE [Concomitant]
     Active Substance: PANTOPRAZOLE SODIUM
     Indication: GASTROOESOPHAGEAL REFLUX DISEASE
     Dosage: 40 MG, DAILY
     Route: 048
     Dates: start: 20161220
  4. FORSTEO [Suspect]
     Active Substance: TERIPARATIDE
     Indication: OSTEOPOROSIS
     Dosage: .08 ML, DAILY
     Route: 065
     Dates: start: 201206, end: 2015
  5. METOPROLOL. [Concomitant]
     Active Substance: METOPROLOL
     Indication: CARDIAC FAILURE
     Dosage: 50 MG, DAILY
     Route: 048
     Dates: start: 20160512
  6. OXYCODONE [Concomitant]
     Active Substance: OXYCODONE
     Indication: PAIN
     Dosage: 20 MG, DAILY
     Route: 048
     Dates: start: 20161028
  7. MACROGOL [Concomitant]
     Active Substance: POLYETHYLENE GLYCOLS
     Indication: CONSTIPATION
     Dosage: VED BEHOV
     Route: 048
     Dates: start: 20180705, end: 20181119
  8. VENLAFAXINE [Concomitant]
     Active Substance: VENLAFAXINE HYDROCHLORIDE
     Indication: DEPRESSION
     Dosage: 300 MG, DAILY
     Route: 048
     Dates: start: 20170213
  9. ACETYLSALICYLIC ACID [Concomitant]
     Active Substance: ASPIRIN
     Indication: ANTICOAGULANT THERAPY
     Dosage: 75 MG, DAILY
     Route: 048
     Dates: start: 20171122, end: 20181119
  10. SALBUTAMOL [Concomitant]
     Active Substance: ALBUTEROL
     Indication: ASTHMA
     Dosage: VED BEHOV STYRKE: 0.2 MG I DISKOS
     Route: 055
     Dates: start: 20130930
  11. PARACETAMOL [Concomitant]
     Active Substance: ACETAMINOPHEN
     Indication: PAIN
     Dosage: VED BEHOV STYRKE: 665MG
     Route: 048
     Dates: start: 20170717
  12. FUROSEMIDE. [Concomitant]
     Active Substance: FUROSEMIDE
     Indication: DIURETIC THERAPY
     Dosage: 80 MG, DAILY
     Route: 048
     Dates: start: 20160512
  13. ALENDRONATE [Suspect]
     Active Substance: ALENDRONATE SODIUM
     Indication: OSTEOPOROSIS
     Dosage: 70 MG, WEEKLY (1/W)
     Route: 048
     Dates: start: 201701, end: 20181119
  14. FORMOTEROL [Concomitant]
     Active Substance: FORMOTEROL
     Indication: CHRONIC OBSTRUCTIVE PULMONARY DISEASE
     Dosage: 2 DF, DAILY
     Route: 055
     Dates: start: 20170126
  15. CALCIUM + VITAMIN D [CALCIUM LACTATE;CALCIUM [Concomitant]
     Indication: OSTEOPOROSIS
     Dosage: 2 DF, DAILY
     Route: 048
     Dates: start: 20120807
  16. PREGABALIN. [Concomitant]
     Active Substance: PREGABALIN
     Indication: THINKING ABNORMAL
     Dosage: 4 ML, DAILY
     Route: 048
     Dates: start: 20170306
  17. QUININE [Concomitant]
     Active Substance: QUININE
     Indication: MUSCLE SPASMS
     Dosage: 100 MG, DAILY
     Route: 048
     Dates: start: 20161115, end: 20181119

REACTIONS (2)
  - Osteonecrosis of jaw [Not Recovered/Not Resolved]
  - Exposed bone in jaw [Not Recovered/Not Resolved]

NARRATIVE: CASE EVENT DATE: 2018
